FAERS Safety Report 20846588 (Version 1)
Quarter: 2022Q2

REPORT INFORMATION
  Report Type: Spontaneous
  Country: US (occurrence: US)
  Receive Date: 20220518
  Receipt Date: 20220518
  Transmission Date: 20220721
  Serious: Yes (Other)
  Sender: FDA-Public Use
  Company Number: US-KVK-TECH, INC-20220400032

PATIENT

DRUGS (2)
  1. PHENTERMINE HYDROCHLORIDE [Suspect]
     Active Substance: PHENTERMINE HYDROCHLORIDE
     Indication: Product used for unknown indication
     Dosage: UNKNOWN DOSE
  2. HYDROXYZINE HYDROCHLORIDE [Suspect]
     Active Substance: HYDROXYZINE HYDROCHLORIDE
     Indication: Product used for unknown indication
     Dosage: UNKNOWN DOSE

REACTIONS (2)
  - Hallucination [Unknown]
  - Drug ineffective [Unknown]
